FAERS Safety Report 12394379 (Version 3)
Quarter: 2016Q2

REPORT INFORMATION
  Report Type: Spontaneous
  Country: US (occurrence: US)
  Receive Date: 20160523
  Receipt Date: 20160624
  Transmission Date: 20160815
  Serious: Yes (Life-Threatening, Hospitalization, Other)
  Sender: FDA-Public Use
  Company Number: US-009507513-1605USA010805

PATIENT
  Age: 60 Year
  Sex: Male

DRUGS (3)
  1. ZOCOR [Concomitant]
     Active Substance: SIMVASTATIN
     Dosage: 20 MG, QD
  2. PRINIVIL [Suspect]
     Active Substance: LISINOPRIL
     Dosage: 10 MG, QD
  3. METFORMIN [Suspect]
     Active Substance: METFORMIN HYDROCHLORIDE
     Dosage: 1000 MG, BID

REACTIONS (3)
  - Acute kidney injury [Recovered/Resolved]
  - Toxicity to various agents [Recovered/Resolved]
  - Lactic acidosis [Recovered/Resolved]

NARRATIVE: CASE EVENT DATE: 20120220
